FAERS Safety Report 23073916 (Version 1)
Quarter: 2023Q4

REPORT INFORMATION
  Report Type: Spontaneous
  Country: US (occurrence: US)
  Receive Date: 20231017
  Receipt Date: 20231017
  Transmission Date: 20240109
  Serious: No
  Sender: FDA-Public Use
  Company Number: US-Dermavant-000821

PATIENT

DRUGS (1)
  1. TAPINAROF [Suspect]
     Active Substance: TAPINAROF
     Indication: Lichen planopilaris

REACTIONS (3)
  - Pain of skin [Unknown]
  - Off label use [Recovered/Resolved]
  - Skin burning sensation [Unknown]
